FAERS Safety Report 4791390-9 (Version None)
Quarter: 2005Q4

REPORT INFORMATION
  Report Type: 
  Country: None (occurrence: None)
  Receive Date: 20051007
  Receipt Date: 20050817
  Transmission Date: 20060501
  Serious: Yes (Death, Hospitalization, Other)
  Sender: FDA-Public Use
  Company Number: US-MERCK-0508USA03284

PATIENT
  Age: 62 Year
  Sex: Male
  Weight: 100 kg

DRUGS (18)
  1. VIOXX [Suspect]
     Indication: ARTHRITIS
     Route: 048
     Dates: start: 20020626, end: 20040822
  2. NIASPAN [Concomitant]
     Route: 065
     Dates: start: 20020408, end: 20040323
  3. ULTRACET [Concomitant]
     Route: 065
  4. MIRAPEX [Concomitant]
     Route: 065
  5. SINEMET [Concomitant]
     Route: 065
  6. HYDROCODONE BITARTRATE + ACETAMINOPHEN [Concomitant]
     Route: 065
     Dates: start: 20020117, end: 20021030
  7. TRAZODONE HYDROCHLORIDE [Concomitant]
     Route: 065
     Dates: start: 20020518
  8. PENTAZOCINE [Concomitant]
     Route: 065
  9. CODEINE [Concomitant]
     Route: 065
     Dates: start: 20020117, end: 20021030
  10. OXYCONTIN [Concomitant]
     Route: 065
     Dates: start: 20020117, end: 20021030
  11. NEURONTIN [Concomitant]
     Route: 065
     Dates: start: 20020513
  12. IBUPROFEN [Concomitant]
     Route: 065
     Dates: start: 20020117, end: 20021030
  13. AMOXIL [Concomitant]
     Route: 065
  14. LIPITOR [Concomitant]
     Route: 065
     Dates: start: 20020408, end: 20040323
  15. LOTENSIN [Concomitant]
     Route: 065
  16. NITROSTAT [Concomitant]
     Route: 065
  17. PREDNISONE [Concomitant]
     Route: 065
  18. BENAZEPRIL HYDROCHLORIDE [Concomitant]
     Route: 065
     Dates: start: 20020212, end: 20040719

REACTIONS (11)
  - AORTIC ANEURYSM [None]
  - CARDIAC FAILURE [None]
  - CEREBROVASCULAR ACCIDENT [None]
  - DEATH [None]
  - DEPRESSION [None]
  - HYPERTENSION [None]
  - MYOCARDIAL INFARCTION [None]
  - PANIC ATTACK [None]
  - POST-TRAUMATIC STRESS DISORDER [None]
  - SLEEP DISORDER [None]
  - SPONDYLITIS [None]
